FAERS Safety Report 20671769 (Version 1)
Quarter: 2022Q2

REPORT INFORMATION
  Report Type: Spontaneous
  Country: TR (occurrence: TR)
  Receive Date: 20220405
  Receipt Date: 20220405
  Transmission Date: 20220721
  Serious: Yes (Death)
  Sender: FDA-Public Use
  Company Number: TR-BEH-2022143459

PATIENT
  Age: 66 Year
  Sex: Male

DRUGS (1)
  1. HUMAN IMMUNOGLOBULIN G [Suspect]
     Active Substance: HUMAN IMMUNOGLOBULIN G
     Indication: Guillain-Barre syndrome
     Dosage: 35 GRAM, QD (0.4G/KG PER DAY) FRO 5 DAYS
     Route: 042

REACTIONS (1)
  - Drug ineffective [Fatal]
